FAERS Safety Report 5912479-4 (Version None)
Quarter: 2008Q4

REPORT INFORMATION
  Report Type: 
  Country: None (occurrence: None)
  Receive Date: 20081007
  Receipt Date: 20081007
  Transmission Date: 20090506
  Serious: Yes (Life-Threatening, Hospitalization, Other)
  Sender: FDA-Public Use
  Company Number: None

PATIENT
  Age: 44 Year
  Sex: Male
  Weight: 74.8435 kg

DRUGS (2)
  1. CHANTIX [Suspect]
     Indication: SMOKING CESSATION THERAPY
     Dosage: 2 X PER DAY  OTHER
     Route: 050
     Dates: start: 20070929, end: 20080404
  2. LANTUS [Suspect]
     Indication: DIABETES MELLITUS
     Dosage: 100 UNITS PER DAY OTHER
     Route: 050
     Dates: start: 20071107, end: 20080102

REACTIONS (7)
  - ANGER [None]
  - APHASIA [None]
  - CEREBROVASCULAR ACCIDENT [None]
  - FALL [None]
  - OVERDOSE [None]
  - PARALYSIS [None]
  - URINARY INCONTINENCE [None]
